FAERS Safety Report 6603662-3 (Version None)
Quarter: 2010Q1

REPORT INFORMATION
  Report Type: 
  Country: None (occurrence: None)
  Receive Date: 20100226
  Receipt Date: 20100203
  Transmission Date: 20100710
  Serious: No
  Sender: FDA-Public Use
  Company Number: US-B.I. PHARMACEUTICALS,INC./RIDGEFIELD-2010-BP-00265BP

PATIENT
  Sex: Female

DRUGS (3)
  1. MIRAPEX [Suspect]
     Indication: PARKINSON'S DISEASE
     Route: 048
     Dates: start: 20070801, end: 20091111
  2. SELEGILINE HCL [Concomitant]
     Dosage: 10 MG
     Dates: start: 20061201
  3. SINEMET [Concomitant]
     Route: 048
     Dates: start: 20070117

REACTIONS (2)
  - COMPULSIONS [None]
  - PATHOLOGICAL GAMBLING [None]
